FAERS Safety Report 7233006-8 (Version None)
Quarter: 2011Q1

REPORT INFORMATION
  Report Type: 
  Country: None (occurrence: None)
  Receive Date: 20110119
  Receipt Date: 20110117
  Transmission Date: 20110831
  Serious: Yes (Hospitalization)
  Sender: FDA-Public Use
  Company Number: IT-PFIZER INC-2011010892

PATIENT
  Age: 54 Year
  Sex: Female

DRUGS (1)
  1. SUTENT [Suspect]
     Indication: RENAL CANCER STAGE IV
     Dosage: 25 MG, 1X/DAY
     Route: 048
     Dates: start: 20070331, end: 20080611

REACTIONS (7)
  - ASTHENIA [None]
  - NAUSEA [None]
  - VOMITING [None]
  - VERTIGO [None]
  - MUCOSAL INFLAMMATION [None]
  - DECREASED APPETITE [None]
  - FLUID RETENTION [None]
